FAERS Safety Report 17856826 (Version 3)
Quarter: 2021Q1

REPORT INFORMATION
  Report Type: Spontaneous
  Country: CA (occurrence: CA)
  Receive Date: 20200603
  Receipt Date: 20210111
  Transmission Date: 20210419
  Serious: Yes (Other)
  Sender: FDA-Public Use
  Company Number: CA-AMERICAN REGENT INC-2020001156

PATIENT
  Age: 45 Year
  Sex: Female

DRUGS (1)
  1. VENOFER [Suspect]
     Active Substance: IRON SUCROSE
     Indication: ANAEMIA
     Dosage: UNK
     Route: 065
     Dates: start: 2019, end: 2019

REACTIONS (4)
  - Chills [Unknown]
  - Chest pain [Unknown]
  - Infusion related reaction [Unknown]
  - Dizziness [Unknown]
